FAERS Safety Report 23390083 (Version 2)
Quarter: 2024Q2

REPORT INFORMATION
  Report Type: Spontaneous
  Country: MT (occurrence: None)
  Receive Date: 20240111
  Receipt Date: 20240409
  Transmission Date: 20240716
  Serious: Yes (Hospitalization, Other)
  Sender: FDA-Public Use
  Company Number: MT-Unichem Pharmaceuticals (USA) Inc-UCM202401-000014

PATIENT
  Sex: Female

DRUGS (4)
  1. AMIODARONE HYDROCHLORIDE [Suspect]
     Active Substance: AMIODARONE HYDROCHLORIDE
     Indication: Hypertrophic cardiomyopathy
  2. CARVEDILOL [Concomitant]
     Active Substance: CARVEDILOL
     Indication: Product used for unknown indication
  3. CARVEDILOL [Concomitant]
     Active Substance: CARVEDILOL
  4. ENALAPRIL [Concomitant]
     Active Substance: ENALAPRIL
     Indication: Product used for unknown indication

REACTIONS (7)
  - Encephalitis [Recovered/Resolved]
  - Behaviour disorder [Recovered/Resolved]
  - Personality disorder [Recovered/Resolved]
  - Partial seizures [Recovered/Resolved]
  - Muscular weakness [Recovered/Resolved]
  - Hyperthyroidism [Recovered/Resolved]
  - Product use in unapproved indication [Unknown]
